FAERS Safety Report 15061554 (Version 1)
Quarter: 2018Q2

REPORT INFORMATION
  Report Type: Spontaneous
  Country: CN (occurrence: CN)
  Receive Date: 20180625
  Receipt Date: 20180625
  Transmission Date: 20180711
  Serious: Yes (Hospitalization, Other)
  Sender: FDA-Public Use
  Company Number: CN-CMP PHARMA-2018CMP00017

PATIENT
  Age: 36 Year
  Sex: Male
  Weight: 49 kg

DRUGS (6)
  1. RIFAMPIN. [Concomitant]
     Active Substance: RIFAMPIN
     Dosage: 450 MG, 1X/DAY
     Route: 065
  2. ISONIAZID. [Suspect]
     Active Substance: ISONIAZID
     Dosage: 300 MG, 1X/DAY
     Route: 065
  3. ETHAMBUTOL [Suspect]
     Active Substance: ETHAMBUTOL HYDROCHLORIDE
     Dosage: 15 MG/KG, 1X/DAY
     Route: 065
  4. RIFAPENTINE [Concomitant]
     Active Substance: RIFAPENTINE
     Indication: PULMONARY TUBERCULOSIS
     Dosage: 600 MG, 1X/WEEK
     Route: 065
  5. ISONIAZID. [Suspect]
     Active Substance: ISONIAZID
     Indication: PULMONARY TUBERCULOSIS
     Dosage: 200 MG, 1X/DAY
     Route: 065
  6. ETHAMBUTOL [Suspect]
     Active Substance: ETHAMBUTOL HYDROCHLORIDE
     Indication: PULMONARY TUBERCULOSIS
     Dosage: 15 MG/KG, EVERY 48 HOURS
     Route: 065

REACTIONS (6)
  - Peripheral nerve injury [Recovering/Resolving]
  - Optic neuritis [Recovering/Resolving]
  - Optic disc haemorrhage [Recovering/Resolving]
  - Neuropathy peripheral [Recovering/Resolving]
  - Paraplegia [Recovering/Resolving]
  - Vocal cord paralysis [Recovered/Resolved]
